FAERS Safety Report 5598117-1 (Version None)
Quarter: 2008Q1

REPORT INFORMATION
  Report Type: 
  Country: None (occurrence: None)
  Receive Date: 20080122
  Receipt Date: 20080110
  Transmission Date: 20080703
  Serious: Yes (Hospitalization)
  Sender: FDA-Public Use
  Company Number: NO-PFIZER INC-2008003139

PATIENT
  Sex: Female

DRUGS (3)
  1. SOLU-MEDROL [Suspect]
     Route: 042
     Dates: start: 20071219, end: 20071219
  2. COPAXONE [Concomitant]
     Indication: MULTIPLE SCLEROSIS
     Dosage: TEXT:IN THE MORNING
     Route: 050
  3. NEXIUM [Concomitant]
     Route: 048
     Dates: start: 20071219, end: 20071219

REACTIONS (5)
  - ERYTHEMA [None]
  - HYPERHIDROSIS [None]
  - HYPOTENSION [None]
  - NAUSEA [None]
  - VOMITING [None]
